FAERS Safety Report 15653526 (Version 1)
Quarter: 2018Q4

REPORT INFORMATION
  Report Type: Spontaneous
  Country: JP (occurrence: JP)
  Receive Date: 20181124
  Receipt Date: 20181124
  Transmission Date: 20190205
  Serious: Yes (Hospitalization, Other)
  Sender: FDA-Public Use
  Company Number: JP-ACCORD-092689

PATIENT
  Age: 54 Year
  Sex: Female

DRUGS (1)
  1. METHOTREXATE. [Suspect]
     Active Substance: METHOTREXATE
     Indication: RHEUMATOID ARTHRITIS

REACTIONS (6)
  - Nausea [Unknown]
  - Ischaemic stroke [Recovering/Resolving]
  - Viral vasculitis [Recovering/Resolving]
  - Varicella zoster virus infection [Unknown]
  - Ophthalmic herpes zoster [Recovering/Resolving]
  - Vomiting [Unknown]
